FAERS Safety Report 4902538-7 (Version None)
Quarter: 2006Q1

REPORT INFORMATION
  Report Type: 
  Country: None (occurrence: None)
  Receive Date: 20060202
  Receipt Date: 20060123
  Transmission Date: 20060701
  Serious: Yes (Hospitalization, Disabling, Other)
  Sender: FDA-Public Use
  Company Number: GBWYE290210JAN06

PATIENT
  Age: 19 Year
  Sex: Female

DRUGS (2)
  1. MINOCIN MR (MINOCYCLINE, UNSPEC) LOT.: N4162A [Suspect]
     Indication: ACNE
     Dosage: 1 CAPSULE 1X PER 1 DAY
     Route: 048
     Dates: start: 20051223, end: 20060110
  2. IBUPROFEN [Concomitant]

REACTIONS (3)
  - EYELID OEDEMA [None]
  - LUPUS-LIKE SYNDROME [None]
  - SWELLING FACE [None]
